FAERS Safety Report 9269769 (Version 2)
Quarter: 2013Q2

REPORT INFORMATION
  Report Type: Spontaneous
  Country: US (occurrence: US)
  Receive Date: 20130503
  Receipt Date: 20130628
  Transmission Date: 20140414
  Serious: Yes (Other)
  Sender: FDA-Public Use
  Company Number: US-GENZYME-FABR-1003217

PATIENT
  Sex: Male
  Weight: 89.59 kg

DRUGS (17)
  1. ALBUTEROL [Concomitant]
     Indication: PRODUCT USED FOR UNKNOWN INDICATION
     Dosage: UNK
     Route: 065
  2. FABRAZYME [Suspect]
     Indication: FABRY^S DISEASE
     Dosage: 90 MG, Q2W
     Route: 042
     Dates: start: 20030904
  3. ADVAIR [Concomitant]
     Indication: PRODUCT USED FOR UNKNOWN INDICATION
     Dosage: UNK
     Route: 065
  4. ASPIRIN [Concomitant]
     Indication: TRANSIENT ISCHAEMIC ATTACK
     Dosage: 325 MG, UNK
     Route: 048
  5. COENZYME Q10 [Concomitant]
     Indication: TRANSIENT ISCHAEMIC ATTACK
     Dosage: 10 MG, QD
     Route: 048
  6. BENADRYL [Concomitant]
     Indication: PREMEDICATION
     Dosage: 50 MG, QD
     Route: 048
  7. ADVIL [Concomitant]
     Indication: PREMEDICATION
     Dosage: 600 MG, QD
     Route: 048
  8. PREDNISONE [Concomitant]
     Indication: PREMEDICATION
     Dosage: 30 MG, UNK
     Route: 065
  9. PREDNISONE [Concomitant]
     Dosage: 20 MG, UNK
     Route: 065
  10. PREDNISONE [Concomitant]
     Dosage: 10 MG, UNK
     Route: 065
  11. CANDESARTAN [Concomitant]
     Indication: PROTEINURIA
     Dosage: UNK
     Route: 065
  12. LIPITOR [Concomitant]
     Indication: CEREBROVASCULAR ACCIDENT
     Dosage: 20 MG, UNK
     Route: 065
  13. NASONEX [Concomitant]
     Indication: PRODUCT USED FOR UNKNOWN INDICATION
     Dosage: 50 MCGX 2 SPRAYS, QD
     Route: 045
  14. SINGULAIR [Concomitant]
     Indication: BRONCHIAL HYPERREACTIVITY
     Dosage: 10 MG, QD
     Route: 048
  15. MULTIVITAMIN AND MINERAL [Concomitant]
     Indication: PRODUCT USED FOR UNKNOWN INDICATION
     Dosage: UNK
     Route: 048
  16. BENICAR [Concomitant]
     Indication: PRODUCT USED FOR UNKNOWN INDICATION
     Dosage: 20 MG, QD
     Route: 065
  17. POTASSIUM [Concomitant]
     Indication: PRODUCT USED FOR UNKNOWN INDICATION
     Dosage: UNK
     Route: 048

REACTIONS (1)
  - Prostate cancer [Not Recovered/Not Resolved]
